FAERS Safety Report 8510237-8 (Version None)
Quarter: 2012Q3

REPORT INFORMATION
  Report Type: 
  Country: None (occurrence: None)
  Receive Date: 20120713
  Receipt Date: 20120709
  Transmission Date: 20120928
  Serious: Yes (Hospitalization)
  Sender: FDA-Public Use
  Company Number: US-CELGENEUS-163-21880-12050513

PATIENT
  Sex: Male

DRUGS (5)
  1. ASPIRIN [Concomitant]
     Dosage: 325 MILLIGRAM
     Route: 065
  2. VITAMIN D [Concomitant]
     Dosage: 2000 IU (INTERNATIONAL UNIT)
     Route: 065
  3. DEXAMETHASONE [Concomitant]
     Dosage: 5.7143 MILLIGRAM
     Route: 065
     Dates: start: 20120418
  4. REVLIMID [Suspect]
     Indication: MULTIPLE MYELOMA
     Dosage: 25 MILLIGRAM
     Route: 048
     Dates: start: 20120418, end: 20120421
  5. MULTI-VITAMINS [Concomitant]
     Route: 065

REACTIONS (4)
  - ADVERSE DRUG REACTION [None]
  - ANAEMIA [None]
  - RASH [None]
  - PYREXIA [None]
